FAERS Safety Report 7830273-4 (Version None)
Quarter: 2011Q4

REPORT INFORMATION
  Report Type: 
  Country: None (occurrence: None)
  Receive Date: 20111021
  Receipt Date: 20111020
  Transmission Date: 20120403
  Serious: Yes (Hospitalization)
  Sender: FDA-Public Use
  Company Number: JP-ABBOTT-11P-087-0718276-00

PATIENT
  Sex: Female
  Weight: 41 kg

DRUGS (19)
  1. TEPRENONE [Concomitant]
     Indication: GASTRIC DISORDER
     Route: 048
     Dates: start: 20090930
  2. FOLIC ACID [Concomitant]
     Indication: PROPHYLAXIS
     Route: 048
     Dates: start: 20091002
  3. FOLIC ACID [Concomitant]
     Indication: ADVERSE EVENT
  4. SENNA LEAF [Concomitant]
     Indication: PRODUCT USED FOR UNKNOWN INDICATION
  5. LACTOMIN [Concomitant]
     Indication: PRODUCT USED FOR UNKNOWN INDICATION
  6. PREDNISOLONE [Concomitant]
     Indication: RHEUMATOID ARTHRITIS
     Route: 048
     Dates: start: 20090930, end: 20110316
  7. BUCILLAMINE [Concomitant]
     Indication: RHEUMATOID ARTHRITIS
     Route: 048
     Dates: start: 20090930
  8. NIZATIDINE [Concomitant]
     Indication: PRODUCT USED FOR UNKNOWN INDICATION
  9. MIZORIBINE [Concomitant]
     Indication: RHEUMATOID ARTHRITIS
     Route: 048
     Dates: start: 20090930
  10. TEPRENONE [Concomitant]
     Indication: GASTRITIS PROPHYLAXIS
  11. TEPRENONE [Concomitant]
     Indication: PROPHYLAXIS
  12. ISONIAZID [Concomitant]
     Indication: ANTIBIOTIC PROPHYLAXIS
     Route: 048
     Dates: start: 20091021, end: 20110316
  13. METHOTREXATE [Concomitant]
     Indication: RHEUMATOID ARTHRITIS
     Dosage: 4MG/WEEK
     Route: 048
     Dates: start: 20090930
  14. MINODRONIC ACID HYDRATE [Concomitant]
     Indication: OSTEOPOROSIS
     Route: 048
     Dates: start: 20100831
  15. HUMIRA [Suspect]
     Indication: RHEUMATOID ARTHRITIS
     Route: 058
     Dates: start: 20091111, end: 20110301
  16. AMLODIPINE BESYLATE [Concomitant]
     Indication: HYPERTENSION
     Route: 048
  17. ZALTOPROFEN [Concomitant]
     Indication: RHEUMATOID ARTHRITIS
     Route: 048
     Dates: start: 20090930, end: 20110316
  18. MECOBALAMIN [Concomitant]
     Indication: RHEUMATOID ARTHRITIS
     Route: 048
     Dates: start: 20090930
  19. LORNOXICAM [Concomitant]
     Indication: RHEUMATOID ARTHRITIS
     Route: 048
     Dates: start: 20090930

REACTIONS (2)
  - HERPES ZOSTER [None]
  - CEREBRAL INFARCTION [None]
